FAERS Safety Report 7456898-6 (Version None)
Quarter: 2011Q2

REPORT INFORMATION
  Report Type: 
  Country: None (occurrence: None)
  Receive Date: 20110504
  Receipt Date: 20110428
  Transmission Date: 20111010
  Serious: No
  Sender: FDA-Public Use
  Company Number: US-BIOGENIDEC-2011BI016113

PATIENT
  Age: 48 Year
  Sex: Female

DRUGS (3)
  1. TYSABRI [Suspect]
     Indication: MULTIPLE SCLEROSIS
     Route: 042
     Dates: start: 20071004, end: 20100618
  2. TYSABRI [Suspect]
     Route: 042
     Dates: start: 20100915, end: 20100915
  3. TYSABRI [Suspect]
     Route: 042
     Dates: start: 20110316

REACTIONS (5)
  - HEADACHE [None]
  - HERPES ZOSTER [None]
  - EXERCISE LACK OF [None]
  - MULTIPLE SCLEROSIS [None]
  - GAIT DISTURBANCE [None]
